FAERS Safety Report 9101684 (Version 3)
Quarter: 2016Q1

REPORT INFORMATION
  Report Type: Spontaneous
  Country: US (occurrence: US)
  Receive Date: 20130218
  Receipt Date: 20160110
  Transmission Date: 20160526
  Serious: Yes (Hospitalization, Other)
  Sender: FDA-Public Use
  Company Number: US-COVIDIEN/TYCO HEALTHCARE/MALLINCKRODT-T201204582

PATIENT
  Age: 43 Year
  Sex: Male

DRUGS (6)
  1. GABLOFEN [Suspect]
     Active Substance: BACLOFEN
     Dosage: 300 MCG/DAY
     Route: 037
     Dates: start: 20121005, end: 20121011
  2. GABLOFEN [Suspect]
     Active Substance: BACLOFEN
     Dosage: 550 MCG/DAY
     Route: 037
     Dates: start: 201210
  3. LIORESAL [Concomitant]
     Active Substance: BACLOFEN
     Indication: MUSCLE SPASTICITY
     Dosage: 749 MCG/DAY
     Route: 037
     Dates: end: 20121004
  4. GABLOFEN [Suspect]
     Active Substance: BACLOFEN
     Indication: MUSCLE SPASTICITY
     Dosage: 500 MCG/DAY
     Route: 037
     Dates: start: 20121004, end: 20121005
  5. GABLOFEN [Suspect]
     Active Substance: BACLOFEN
     Dosage: 600 MCG/DAY
     Route: 037
     Dates: start: 201210, end: 201210
  6. GABLOFEN [Suspect]
     Active Substance: BACLOFEN
     Dosage: 700 MCG/DAY
     Route: 037
     Dates: start: 20121011, end: 201210

REACTIONS (18)
  - Nausea [Unknown]
  - Dizziness [Unknown]
  - Dysuria [Recovering/Resolving]
  - Tinnitus [Unknown]
  - Device failure [Recovered/Resolved]
  - Bedridden [Recovered/Resolved]
  - Malaise [Unknown]
  - Sedation [Unknown]
  - Dysstasia [Unknown]
  - Muscle spasticity [Recovering/Resolving]
  - Headache [Unknown]
  - Asthenia [Unknown]
  - Hypotonia [Recovering/Resolving]
  - Musculoskeletal stiffness [Unknown]
  - Drug effect decreased [Unknown]
  - Abasia [Recovered/Resolved]
  - Vomiting [Unknown]
  - Dyspnoea [Unknown]

NARRATIVE: CASE EVENT DATE: 201210
